FAERS Safety Report 23367796 (Version 2)
Quarter: 2024Q1

REPORT INFORMATION
  Report Type: Spontaneous
  Country: US (occurrence: US)
  Receive Date: 20240104
  Receipt Date: 20240215
  Transmission Date: 20240410
  Serious: Yes (Other)
  Sender: FDA-Public Use
  Company Number: US-BRISTOL-MYERS SQUIBB COMPANY-2024-000397

PATIENT
  Age: 58 Year
  Sex: Male
  Weight: 63.1 kg

DRUGS (1)
  1. LENALIDOMIDE [Suspect]
     Active Substance: LENALIDOMIDE
     Indication: Plasma cell myeloma
     Dosage: D1-14 Q21 DAYS
     Route: 048
     Dates: start: 20231213

REACTIONS (11)
  - Pyrexia [Recovering/Resolving]
  - Initial insomnia [Recovering/Resolving]
  - Fatigue [Recovering/Resolving]
  - Headache [Recovering/Resolving]
  - Constipation [Recovering/Resolving]
  - Blood glucose decreased [Unknown]
  - Diabetes mellitus [Unknown]
  - Off label use [Unknown]
  - Nasopharyngitis [Unknown]
  - Asthenia [Not Recovered/Not Resolved]
  - Hypersensitivity [Not Recovered/Not Resolved]

NARRATIVE: CASE EVENT DATE: 20231201
